FAERS Safety Report 9998567 (Version 2)
Quarter: 2014Q1

REPORT INFORMATION
  Report Type: Spontaneous
  Country: US (occurrence: US)
  Receive Date: 20140312
  Receipt Date: 20140318
  Transmission Date: 20141002
  Serious: Yes (Other)
  Sender: FDA-Public Use
  Company Number: US-BIOGENIDEC-2014BI018871

PATIENT
  Age: 59 Year
  Sex: Female

DRUGS (16)
  1. TECFIDERA [Suspect]
     Indication: MULTIPLE SCLEROSIS
     Dates: start: 201309, end: 20140226
  2. TECFIDERA [Suspect]
     Indication: MULTIPLE SCLEROSIS
     Route: 048
     Dates: start: 201310
  3. VISTRARIL [Concomitant]
  4. LYRICA [Concomitant]
  5. TRAMADOL [Concomitant]
  6. PRILOSEC [Concomitant]
  7. TOPROL XL [Concomitant]
  8. CLONIDINE HCL [Concomitant]
  9. ALBUTEROL 0.083% INHAL SOLN [Concomitant]
  10. CELEXA [Concomitant]
  11. ADDERALL [Concomitant]
  12. AMPYRA [Concomitant]
     Indication: GAIT DISTURBANCE
     Route: 048
  13. WELLBUTRIN XL [Concomitant]
  14. PARAFON FORTE [Concomitant]
  15. CALCIUM [Concomitant]
  16. VITAMIN D [Concomitant]

REACTIONS (16)
  - Hepatitis [Not Recovered/Not Resolved]
  - Alanine aminotransferase increased [Not Recovered/Not Resolved]
  - Aspartate aminotransferase increased [Not Recovered/Not Resolved]
  - Haematemesis [Not Recovered/Not Resolved]
  - Dyspnoea [Recovered/Resolved]
  - Fall [Recovered/Resolved]
  - Rib fracture [Recovered/Resolved]
  - Urine bilirubin increased [Not Recovered/Not Resolved]
  - Blood bilirubin increased [Not Recovered/Not Resolved]
  - Blood alkaline phosphatase increased [Not Recovered/Not Resolved]
  - Malaise [Not Recovered/Not Resolved]
  - Protein total increased [Not Recovered/Not Resolved]
  - Hepatic enzyme increased [Not Recovered/Not Resolved]
  - Abdominal pain upper [Not Recovered/Not Resolved]
  - Nausea [Not Recovered/Not Resolved]
  - Vomiting [Not Recovered/Not Resolved]
